FAERS Safety Report 11456786 (Version 17)
Quarter: 2016Q4

REPORT INFORMATION
  Report Type: Report from Study
  Country: CA (occurrence: CA)
  Receive Date: 20150903
  Receipt Date: 20161028
  Transmission Date: 20170206
  Serious: Yes (Other)
  Sender: FDA-Public Use
  Company Number: CA-ROCHE-1506895

PATIENT
  Age: 32 Year
  Sex: Female
  Weight: 88.3 kg

DRUGS (9)
  1. VITAMIN B12 [Concomitant]
     Active Substance: CYANOCOBALAMIN
  2. PREDNISONE. [Concomitant]
     Active Substance: PREDNISONE
  3. ACTEMRA [Suspect]
     Active Substance: TOCILIZUMAB
     Indication: RHEUMATOID ARTHRITIS
     Route: 042
     Dates: start: 20141016
  4. CITALOPRAM [Concomitant]
     Active Substance: CITALOPRAM HYDROBROMIDE
  5. QUETIAPINE. [Concomitant]
     Active Substance: QUETIAPINE
  6. TRAZODONE [Concomitant]
     Active Substance: TRAZODONE HYDROCHLORIDE
  7. METHOTREXATE. [Suspect]
     Active Substance: METHOTREXATE
     Indication: PRODUCT USED FOR UNKNOWN INDICATION
     Route: 065
  8. FOLIC ACID. [Concomitant]
     Active Substance: FOLIC ACID
  9. OMEPRAZOLE. [Concomitant]
     Active Substance: OMEPRAZOLE

REACTIONS (31)
  - Hepatic steatosis [Not Recovered/Not Resolved]
  - Infusion related reaction [Unknown]
  - Pain in extremity [Unknown]
  - Cystitis [Not Recovered/Not Resolved]
  - Vomiting [Recovered/Resolved]
  - Nasopharyngitis [Unknown]
  - Insomnia [Not Recovered/Not Resolved]
  - Head discomfort [Recovered/Resolved]
  - Erythema [Unknown]
  - Headache [Recovered/Resolved]
  - Abdominal pain [Unknown]
  - Inflammatory bowel disease [Unknown]
  - Tooth disorder [Unknown]
  - Urinary incontinence [Unknown]
  - Rash [Not Recovered/Not Resolved]
  - Oxygen saturation decreased [Unknown]
  - Malaise [Recovered/Resolved]
  - Blood pressure increased [Unknown]
  - Weight decreased [Unknown]
  - Anxiety [Not Recovered/Not Resolved]
  - Anxiety [Not Recovered/Not Resolved]
  - Nasopharyngitis [Recovering/Resolving]
  - Infusion site bruising [Unknown]
  - Heart rate decreased [Unknown]
  - Arthralgia [Not Recovered/Not Resolved]
  - Nausea [Recovered/Resolved]
  - Pallor [Recovered/Resolved]
  - Bruxism [Unknown]
  - Ovarian cyst [Not Recovered/Not Resolved]
  - Body temperature decreased [Unknown]
  - Blood pressure increased [Unknown]

NARRATIVE: CASE EVENT DATE: 20141210
